FAERS Safety Report 19031497 (Version 1)
Quarter: 2021Q1

REPORT INFORMATION
  Report Type: Spontaneous
  Country: US (occurrence: US)
  Receive Date: 20210319
  Receipt Date: 20210319
  Transmission Date: 20210420
  Serious: Yes (Other)
  Sender: FDA-Public Use
  Company Number: None

PATIENT
  Age: 73 Year
  Sex: Female
  Weight: 83.91 kg

DRUGS (13)
  1. LISINOPRIL. [Concomitant]
     Active Substance: LISINOPRIL
  2. VITAMIN D3 W C [Concomitant]
  3. LUMIGAN [Suspect]
     Active Substance: BIMATOPROST
     Indication: GLAUCOMA
     Dosage: ?          QUANTITY:1 DROP BOTH EYES;OTHER FREQUENCY:EVENING;?
     Route: 047
     Dates: start: 20210306, end: 20210309
  4. FLUOXETINE [Concomitant]
     Active Substance: FLUOXETINE HYDROCHLORIDE
  5. GAVISICON [Concomitant]
  6. REFRESH PLUS EYEDROPS [Concomitant]
  7. ALPHAGAN P [Concomitant]
     Active Substance: BRIMONIDINE TARTRATE
  8. ACYCLOVIR (PRN [Concomitant]
  9. ALLEGRA [Concomitant]
     Active Substance: FEXOFENADINE HYDROCHLORIDE
  10. CRANBERRY. [Concomitant]
     Active Substance: CRANBERRY
  11. ATORVASTATIN [Concomitant]
     Active Substance: ATORVASTATIN
  12. CULTURELLE [Concomitant]
     Active Substance: LACTOBACILLUS RHAMNOSUS
  13. TRAVANTAN Z [Concomitant]

REACTIONS (7)
  - Back pain [None]
  - Sleep disorder [None]
  - Vision blurred [None]
  - Chills [None]
  - Neck pain [None]
  - Intentional dose omission [None]
  - Arthralgia [None]

NARRATIVE: CASE EVENT DATE: 20210309
